FAERS Safety Report 7807059-X (Version None)
Quarter: 2011Q4

REPORT INFORMATION
  Report Type: 
  Country: None (occurrence: None)
  Receive Date: 20111011
  Receipt Date: 20111007
  Transmission Date: 20120403
  Serious: Yes (Death)
  Sender: FDA-Public Use
  Company Number: GB-TEVA-304002ISR

PATIENT
  Age: 75 Year
  Sex: Male
  Weight: 84.9 kg

DRUGS (6)
  1. PEMETREXED [Suspect]
     Indication: MESOTHELIOMA
     Route: 042
     Dates: start: 20110603, end: 20110603
  2. SIMVASTATIN [Concomitant]
  3. BENDROFLUMETHIAZIDE [Concomitant]
  4. CISPLATIN [Suspect]
     Indication: MESOTHELIOMA
     Route: 042
     Dates: start: 20110603, end: 20110603
  5. FOLIC ACID [Concomitant]
  6. VITAMIN B-12 [Concomitant]

REACTIONS (2)
  - CHEST DISCOMFORT [None]
  - MYOCARDIAL INFARCTION [None]
